FAERS Safety Report 9680301 (Version 1)
Quarter: 2013Q4

REPORT INFORMATION
  Report Type: Spontaneous
  Country: US (occurrence: US)
  Receive Date: 20131111
  Receipt Date: 20131111
  Transmission Date: 20140711
  Serious: Yes (Hospitalization, Other)
  Sender: FDA-Public Use
  Company Number: US-BRISTOL-MYERS SQUIBB COMPANY-19406321

PATIENT
  Age: 65 Year
  Sex: Male
  Weight: 85 kg

DRUGS (9)
  1. COUMADIN [Suspect]
     Indication: PULMONARY EMBOLISM
     Route: 048
     Dates: start: 20130423
  2. DENOSUMAB [Suspect]
     Indication: METASTASES TO BONE
     Route: 058
     Dates: start: 20130627
  3. ADVAIR [Concomitant]
  4. LOVASTATIN [Concomitant]
  5. ATROVENT [Concomitant]
  6. CARBOPLATIN [Concomitant]
  7. ALIMTA [Concomitant]
  8. FOLIC ACID [Concomitant]
  9. VITAMIN B12 [Concomitant]

REACTIONS (12)
  - Musculoskeletal pain [Recovered/Resolved]
  - Pain in extremity [Recovered/Resolved]
  - International normalised ratio increased [Unknown]
  - Abdominal distension [Unknown]
  - Abdominal pain [Unknown]
  - Pneumonia [Unknown]
  - Renal failure [Unknown]
  - Anaemia [Unknown]
  - Thrombocytopenia [Unknown]
  - Cardiac failure congestive [Unknown]
  - Coagulopathy [Unknown]
  - Haematuria [Unknown]
